FAERS Safety Report 5223800-7 (Version None)
Quarter: 2007Q1

REPORT INFORMATION
  Report Type: 
  Country: None (occurrence: None)
  Receive Date: 20070130
  Receipt Date: 20070122
  Transmission Date: 20070707
  Serious: Yes (Disabling)
  Sender: FDA-Public Use
  Company Number: PHRM2007FR00599

PATIENT
  Age: 68 Year
  Sex: Female

DRUGS (3)
  1. ZOMETA [Suspect]
     Indication: METASTASES TO BONE
     Dosage: 4 MG, UNK
     Route: 042
     Dates: start: 20030121
  2. TAXOTERE [Concomitant]
     Route: 042
  3. CORTICOSTEROID NOS [Concomitant]

REACTIONS (3)
  - ABSCESS DRAINAGE [None]
  - ABSCESS ORAL [None]
  - OSTEONECROSIS [None]
